FAERS Safety Report 9473548 (Version 2)
Quarter: 2013Q3

REPORT INFORMATION
  Report Type: Report from Study
  Country: CA (occurrence: CA)
  Receive Date: 20130823
  Receipt Date: 20130823
  Transmission Date: 20140515
  Serious: Yes (Other)
  Sender: FDA-Public Use
  Company Number: CA-CELGENEUS-028-22393-13060878

PATIENT
  Sex: Female

DRUGS (1)
  1. ISTODAX [Suspect]
     Indication: PERIPHERAL T-CELL LYMPHOMA UNSPECIFIED
     Route: 041

REACTIONS (3)
  - Pancytopenia [Not Recovered/Not Resolved]
  - Neutrophil count decreased [Unknown]
  - Performance status decreased [Unknown]
